FAERS Safety Report 8676179 (Version 3)
Quarter: 2013Q1

REPORT INFORMATION
  Report Type: Spontaneous
  Country: US (occurrence: US)
  Receive Date: 20120720
  Receipt Date: 20130103
  Transmission Date: 20140127
  Serious: Yes (Disabling)
  Sender: FDA-Public Use
  Company Number: US-009507513-2012SP031149

PATIENT
  Sex: Female

DRUGS (1)
  1. NASONEX [Suspect]
     Dosage: 2 SPRAYS IN EACH NOSTRIL AT NIGHT
     Dates: start: 2002

REACTIONS (6)
  - Disability [Recovered/Resolved]
  - Lacrimation increased [Recovered/Resolved]
  - Cough [Recovered/Resolved]
  - Drug dose omission [Unknown]
  - No therapeutic response [Recovered/Resolved]
  - Drug administration error [Unknown]
